FAERS Safety Report 25419039 (Version 1)
Quarter: 2025Q2

REPORT INFORMATION
  Report Type: Report from Study
  Country: DE (occurrence: DE)
  Receive Date: 20250610
  Receipt Date: 20250610
  Transmission Date: 20250717
  Serious: Yes (Hospitalization)
  Sender: IPSEN BIOPHARMACEUTICALS, INC.
  Company Number: DE-SERVIER-S25003629

PATIENT
  Age: 70 Year
  Sex: Female
  Weight: 80 kg

DRUGS (14)
  1. ONIVYDE [Suspect]
     Active Substance: IRINOTECAN HYDROCHLORIDE
     Indication: Pancreatic carcinoma metastatic
     Dosage: 94 MG/M2, QD, D1 FROM A 14-DAY CYCLE
     Route: 042
     Dates: start: 20250311, end: 20250311
  2. ONIVYDE [Suspect]
     Active Substance: IRINOTECAN HYDROCHLORIDE
     Dosage: 94 MG/M2, QD, D1 FROM A 14-DAY CYCLE
     Route: 042
     Dates: start: 20250402, end: 20250402
  3. ONIVYDE [Suspect]
     Active Substance: IRINOTECAN HYDROCHLORIDE
     Dosage: 94 MG/M2, QD, D1 FROM A 14-DAY CYCLE
     Route: 042
     Dates: start: 20250429, end: 20250429
  4. OXALIPLATIN [Suspect]
     Active Substance: OXALIPLATIN
     Indication: Pancreatic carcinoma metastatic
     Dosage: 112.8 MG/M2, QD, D1 FROM A 14-DAY CYCLE
     Route: 042
     Dates: start: 20250311, end: 20250311
  5. OXALIPLATIN [Suspect]
     Active Substance: OXALIPLATIN
     Dosage: 112.8 MG/M2, QD, D1 FROM A 14-DAY CYCLE
     Route: 042
     Dates: start: 20250402, end: 20250402
  6. OXALIPLATIN [Suspect]
     Active Substance: OXALIPLATIN
     Dosage: 112.8 MG/M2, QD, D1 FROM A 14-DAY CYCLE
     Route: 042
     Dates: start: 20250429, end: 20250429
  7. FLUOROURACIL [Suspect]
     Active Substance: FLUOROURACIL
     Indication: Pancreatic carcinoma metastatic
     Dosage: 4512 MG/M2, QD, D1-D2 FROM 14-DAY CYCLE
     Route: 042
     Dates: start: 20250311, end: 20250311
  8. FLUOROURACIL [Suspect]
     Active Substance: FLUOROURACIL
     Dosage: 4512 MG/M2, QD, D1-D2 FROM 14-DAY CYCLE
     Route: 042
     Dates: start: 20250402, end: 20250402
  9. FLUOROURACIL [Suspect]
     Active Substance: FLUOROURACIL
     Dosage: 4512 MG/M2, QD, D1-D2 FROM 14-DAY CYCLE
     Route: 042
     Dates: start: 20250429, end: 20250429
  10. LEUCOVORIN [Suspect]
     Active Substance: LEUCOVORIN\LEUCOVORIN CALCIUM
     Indication: Pancreatic carcinoma metastatic
     Dosage: 752 MG/M2, QD, D1 FROM A 14-DAY CYCLE
     Route: 042
     Dates: start: 20250311, end: 20250311
  11. LEUCOVORIN [Suspect]
     Active Substance: LEUCOVORIN\LEUCOVORIN CALCIUM
     Dosage: 752 MG/M2, QD, D1 FROM A 14-DAY CYCLE
     Route: 042
     Dates: start: 20250402, end: 20250402
  12. LEUCOVORIN [Suspect]
     Active Substance: LEUCOVORIN\LEUCOVORIN CALCIUM
     Dosage: 752 MG/M2, QD, D1 FROM A 14-DAY CYCLE
     Route: 042
     Dates: start: 20250429, end: 20250429
  13. HYDROCHLOROTHIAZIDE [Concomitant]
     Active Substance: HYDROCHLOROTHIAZIDE
     Indication: Hypertension
     Dosage: 12.5 MG, QD
     Route: 048
  14. LISINOPRIL [Concomitant]
     Active Substance: LISINOPRIL
     Indication: Hypertension
     Dosage: 10 MG, TID
     Route: 048

REACTIONS (3)
  - Diarrhoea [Recovered/Resolved]
  - Diarrhoea [Recovered/Resolved]
  - Clostridium difficile colitis [Recovered/Resolved]

NARRATIVE: CASE EVENT DATE: 20250314
